FAERS Safety Report 10269962 (Version 1)
Quarter: 2014Q2

REPORT INFORMATION
  Report Type: Spontaneous
  Country: US (occurrence: None)
  Receive Date: 20140626
  Receipt Date: 20140626
  Transmission Date: 20141212
  Serious: Yes (Other)
  Sender: FDA-Public Use
  Company Number: TPU2014-00151

PATIENT
  Age: 77 Year
  Sex: Female

DRUGS (1)
  1. LIDODERM [Suspect]
     Indication: BACK PAIN
     Route: 061
     Dates: start: 2011

REACTIONS (2)
  - Drug ineffective [None]
  - Hip fracture [None]
